FAERS Safety Report 4330175-4 (Version None)
Quarter: 2004Q2

REPORT INFORMATION
  Report Type: 
  Country: None (occurrence: None)
  Receive Date: 20040401
  Receipt Date: 20040316
  Transmission Date: 20050107
  Serious: Yes (Hospitalization)
  Sender: FDA-Public Use
  Company Number: 2004-DE-01288GD

PATIENT
  Age: 19 Year
  Sex: Male

DRUGS (4)
  1. CODEINE (CODEINE) [Suspect]
     Indication: NASOPHARYNGITIS
     Dosage: 10 MG 3 TIMES DAILY
  2. ACETAMINOPHEN [Suspect]
     Indication: NASOPHARYNGITIS
  3. LYSOZYME HYDROCHLORIDE (LYSOZYME HYDROCHLORIDE) [Suspect]
     Indication: NASOPHARYNGITIS
  4. D-CHLORPHENIRAMINE MALEATE (DEXCHLORPHENIRAMINE MALEATE) [Suspect]
     Indication: NASOPHARYNGITIS

REACTIONS (6)
  - BLOOD BILIRUBIN INCREASED [None]
  - DRUG HYPERSENSITIVITY [None]
  - HUMAN HERPESVIRUS 6 INFECTION [None]
  - INFECTIOUS MONONUCLEOSIS [None]
  - LYMPHOID TISSUE HYPERPLASIA [None]
  - THROMBOCYTOPENIC PURPURA [None]
